FAERS Safety Report 13450834 (Version 1)
Quarter: 2017Q2

REPORT INFORMATION
  Report Type: Spontaneous
  Country: US (occurrence: US)
  Receive Date: 20170417
  Receipt Date: 20170417
  Transmission Date: 20170830
  Serious: Yes (Other)
  Sender: FDA-Public Use
  Company Number: None

PATIENT
  Age: 42 Year
  Sex: Male
  Weight: 137.7 kg

DRUGS (8)
  1. SAPHRIS [Suspect]
     Active Substance: ASENAPINE MALEATE
  2. CLONAZEPAM. [Concomitant]
     Active Substance: CLONAZEPAM
  3. HYDROCODONE [Concomitant]
     Active Substance: HYDROCODONE
  4. ATENOLOL. [Concomitant]
     Active Substance: ATENOLOL
  5. METFORMIN [Concomitant]
     Active Substance: METFORMIN HYDROCHLORIDE
  6. ZYPREXA [Suspect]
     Active Substance: OLANZAPINE
  7. LOSARTAN. [Concomitant]
     Active Substance: LOSARTAN
  8. XANAX [Concomitant]
     Active Substance: ALPRAZOLAM

REACTIONS (4)
  - Impaired quality of life [None]
  - Akathisia [None]
  - Pain [None]
  - Fear [None]

NARRATIVE: CASE EVENT DATE: 20160229
